FAERS Safety Report 8482948-4 (Version None)
Quarter: 2012Q3

REPORT INFORMATION
  Report Type: 
  Country: None (occurrence: None)
  Receive Date: 20120702
  Receipt Date: 20120626
  Transmission Date: 20120928
  Serious: Yes (Hospitalization)
  Sender: FDA-Public Use
  Company Number: US-ACTELION-A-US2012-65591

PATIENT

DRUGS (4)
  1. TRACLEER [Suspect]
     Indication: PULMONARY ARTERIAL HYPERTENSION
     Dosage: UNK
     Route: 048
     Dates: start: 20120507
  2. TADALAFIL [Concomitant]
  3. COUMADIN [Concomitant]
  4. EPOPROSTENOL SODIUM [Suspect]
     Indication: PULMONARY ARTERIAL HYPERTENSION
     Dosage: 47 NG/KG, PER MIN
     Route: 042
     Dates: start: 20110305

REACTIONS (10)
  - FLUID OVERLOAD [None]
  - WEIGHT INCREASED [None]
  - PERICARDIAL EFFUSION [None]
  - ASCITES [None]
  - DYSPNOEA EXERTIONAL [None]
  - INFECTION [None]
  - OEDEMA PERIPHERAL [None]
  - FLUID RETENTION [None]
  - CONDITION AGGRAVATED [None]
  - PH BODY FLUID ABNORMAL [None]
